FAERS Safety Report 12405320 (Version 1)
Quarter: 2016Q2

REPORT INFORMATION
  Report Type: Spontaneous
  Country: US (occurrence: US)
  Receive Date: 20160525
  Receipt Date: 20160525
  Transmission Date: 20160815
  Serious: Yes (Other)
  Sender: FDA-Public Use
  Company Number: US-TEIKOKU PHARMA USA-TPU2016-00316

PATIENT
  Sex: Female
  Weight: 118.04 kg

DRUGS (2)
  1. LIDOCAINE PATCH [Suspect]
     Active Substance: LIDOCAINE
     Indication: BACK PAIN
     Dosage: 3 PATCHES EVERY 2-3 DAYS APPLIED TOPICALLY TO HIP AND BACK
     Route: 061
     Dates: start: 2015
  2. VOLTAREN [Concomitant]
     Active Substance: DICLOFENAC SODIUM
     Indication: ARTHRALGIA
     Dosage: APPLIED TOPICALLY TO BOTH KNEES
     Route: 061

REACTIONS (3)
  - Cholelithiasis [Unknown]
  - Drug ineffective for unapproved indication [Unknown]
  - Atrial fibrillation [Unknown]

NARRATIVE: CASE EVENT DATE: 2015
